FAERS Safety Report 7543898-0 (Version None)
Quarter: 2011Q2

REPORT INFORMATION
  Report Type: 
  Country: None (occurrence: None)
  Receive Date: 20110613
  Receipt Date: 20110601
  Transmission Date: 20111010
  Serious: Yes (Other)
  Sender: FDA-Public Use
  Company Number: FR-TEVA-281023ISR

PATIENT
  Sex: Female

DRUGS (2)
  1. ESOMEPRAZOLE MAGNESIUM [Concomitant]
     Route: 048
  2. COPAXONE [Suspect]
     Indication: MULTIPLE SCLEROSIS
     Dosage: 20 MILLIGRAM;
     Route: 058
     Dates: start: 20070831, end: 20110327

REACTIONS (2)
  - EMBOLIA CUTIS MEDICAMENTOSA [None]
  - SKIN NECROSIS [None]
